FAERS Safety Report 16173395 (Version 1)
Quarter: 2019Q2

REPORT INFORMATION
  Report Type: Spontaneous
  Country: US (occurrence: US)
  Receive Date: 20190306
  Receipt Date: 20190306
  Transmission Date: 20190711
  Serious: No
  Sender: FDA-Public Use
  Company Number: None

PATIENT
  Age: 37 Year
  Sex: Female

DRUGS (2)
  1. MAKENA [Suspect]
     Active Substance: HYDROXYPROGESTERONE CAPROATE
     Route: 058
     Dates: start: 20181108, end: 20181108
  2. PRENATAL VITAMIN [Concomitant]
     Active Substance: VITAMINS

REACTIONS (4)
  - Injection site mass [None]
  - Injection site pain [None]
  - Injection site pruritus [None]
  - Injection site bruising [None]

NARRATIVE: CASE EVENT DATE: 20181108
